FAERS Safety Report 8408177-8 (Version None)
Quarter: 2012Q2

REPORT INFORMATION
  Report Type: 
  Country: None (occurrence: None)
  Receive Date: 20120604
  Receipt Date: 20120531
  Transmission Date: 20120825
  Serious: Yes (Other)
  Sender: FDA-Public Use
  Company Number: CHPA2012US010318

PATIENT
  Age: 75 Year
  Sex: Male

DRUGS (1)
  1. VOLTAREN [Suspect]
     Indication: TINEA PEDIS
     Dosage: UNK, UNK
     Route: 061
     Dates: start: 20100101, end: 20100101

REACTIONS (3)
  - WRONG TECHNIQUE IN DRUG USAGE PROCESS [None]
  - MALIGNANT NEOPLASM OF EYE [None]
  - OFF LABEL USE [None]
